FAERS Safety Report 7317779-1 (Version None)
Quarter: 2011Q1

REPORT INFORMATION
  Report Type: 
  Country: None (occurrence: None)
  Receive Date: 20110226
  Receipt Date: 20101210
  Transmission Date: 20110831
  Serious: No
  Sender: FDA-Public Use
  Company Number: US-ALLERGAN-1016040US

PATIENT
  Age: 52 Year
  Sex: Female

DRUGS (4)
  1. IRON [Concomitant]
     Indication: ANAEMIA
     Dosage: UNK
     Route: 042
     Dates: start: 20101209, end: 20101209
  2. BOTOX COSMETIC [Suspect]
     Indication: SKIN WRINKLING
     Dosage: UNK
     Route: 030
     Dates: start: 20101207, end: 20101207
  3. VITAMIN B12                        /00056201/ [Concomitant]
     Indication: ANAEMIA
     Dosage: UNK
     Route: 030
  4. STEROIDS [Concomitant]
     Indication: PROPHYLAXIS
     Dosage: UNK
     Dates: start: 20101208, end: 20101208

REACTIONS (3)
  - EYELID PTOSIS [None]
  - PERIORBITAL OEDEMA [None]
  - MUSCLE TWITCHING [None]
